FAERS Safety Report 18359683 (Version 1)
Quarter: 2020Q4

REPORT INFORMATION
  Report Type: Spontaneous
  Country: US (occurrence: US)
  Receive Date: 20201008
  Receipt Date: 20201008
  Transmission Date: 20210114
  Serious: No
  Sender: FDA-Public Use
  Company Number: US-CELGENEUS-USA-20201000321

PATIENT
  Sex: Female

DRUGS (2)
  1. POMALYST [Suspect]
     Active Substance: POMALIDOMIDE
     Indication: PLASMA CELL MYELOMA
     Dosage: 4 MILLIGRAM
     Route: 048
     Dates: start: 20190530
  2. POMALYST [Suspect]
     Active Substance: POMALIDOMIDE
     Indication: ANAEMIA
     Dosage: 4 MILLIGRAM
     Route: 048
     Dates: start: 202008

REACTIONS (3)
  - Illness [Recovered/Resolved]
  - Pyrexia [Recovered/Resolved]
  - Abdominal pain upper [Recovered/Resolved]
